FAERS Safety Report 6200533-1 (Version None)
Quarter: 2009Q2

REPORT INFORMATION
  Report Type: 
  Country: None (occurrence: None)
  Receive Date: 20090522
  Receipt Date: 20090511
  Transmission Date: 20091009
  Serious: Yes (Other)
  Sender: FDA-Public Use
  Company Number: NL-AMGEN-US347995

PATIENT

DRUGS (1)
  1. ENBREL [Suspect]
     Indication: JUVENILE ARTHRITIS
     Dosage: USUAL DOSE 0.4 MG/KG TWICE WEEKLY; POSSIBLY INITIATED OR CHANGED TO DOUBLE DOSE OF 0.8 MG/KG WEEKLY

REACTIONS (1)
  - GASTROINTESTINAL INFECTION [None]
